FAERS Safety Report 5817637-5 (Version None)
Quarter: 2008Q3

REPORT INFORMATION
  Report Type: 
  Country: None (occurrence: None)
  Receive Date: 20080722
  Receipt Date: 20080710
  Transmission Date: 20090109
  Serious: Yes (Death)
  Sender: FDA-Public Use
  Company Number: FR-ROCHE-572549

PATIENT
  Age: 67 Year
  Sex: Male

DRUGS (3)
  1. ROCEPHIN [Suspect]
     Indication: SEPTIC SHOCK
     Route: 042
  2. CACIT [Interacting]
     Indication: DRUG USE FOR UNKNOWN INDICATION
     Route: 048
  3. FRAGMIN [Concomitant]

REACTIONS (2)
  - DEATH [None]
  - DRUG INTERACTION [None]
